FAERS Safety Report 11965375 (Version 1)
Quarter: 2016Q1

REPORT INFORMATION
  Report Type: Spontaneous
  Country: US (occurrence: US)
  Receive Date: 20160127
  Receipt Date: 20160127
  Transmission Date: 20160526
  Serious: No
  Sender: FDA-Public Use
  Company Number: US-TEVA-595511USA

PATIENT
  Sex: Male
  Weight: 37.23 kg

DRUGS (1)
  1. DEXMETHYLPHENIDATE [Suspect]
     Active Substance: DEXMETHYLPHENIDATE HYDROCHLORIDE
     Indication: ATTENTION DEFICIT/HYPERACTIVITY DISORDER

REACTIONS (2)
  - Inappropriate schedule of drug administration [Not Recovered/Not Resolved]
  - Decreased appetite [Recovering/Resolving]
